FAERS Safety Report 9697480 (Version 2)
Quarter: 2013Q4

REPORT INFORMATION
  Report Type: Report from Study
  Country: CA (occurrence: CA)
  Receive Date: 20131120
  Receipt Date: 20131121
  Transmission Date: 20140711
  Serious: Yes (Death)
  Sender: FDA-Public Use
  Company Number: PHHY2013CA132337

PATIENT
  Sex: Female

DRUGS (3)
  1. CLOZARIL [Suspect]
     Indication: DYSTONIA
     Dosage: 175 MG, UNK
     Route: 048
     Dates: start: 20010314
  2. ARICEPT [Concomitant]
     Dosage: 10 MG, UNK
  3. CITALOPRAM [Concomitant]
     Dosage: 20 MG, UNK

REACTIONS (1)
  - Pneumonia [Fatal]
